FAERS Safety Report 15815549 (Version 3)
Quarter: 2019Q1

REPORT INFORMATION
  Report Type: Spontaneous
  Country: FI (occurrence: FI)
  Receive Date: 20190112
  Receipt Date: 20190222
  Transmission Date: 20190417
  Serious: Yes (Other)
  Sender: FDA-Public Use
  Company Number: PHHY2019FI003337

PATIENT
  Age: 45 Year
  Sex: Female
  Weight: 59.9 kg

DRUGS (3)
  1. SIMPONI [Suspect]
     Active Substance: GOLIMUMAB
     Indication: SPONDYLITIS
     Dosage: 50 MG, QMO
     Route: 058
     Dates: start: 20180201, end: 20181102
  2. ETANERCEPT [Suspect]
     Active Substance: ETANERCEPT
     Indication: BACK DISORDER
     Dosage: UNK
     Route: 065
  3. BURANA [Concomitant]
     Active Substance: IBUPROFEN
     Indication: PRODUCT USED FOR UNKNOWN INDICATION
     Dosage: 800 MG, AS NEEDED
     Route: 048

REACTIONS (8)
  - Metastases to lymph nodes [Unknown]
  - Neoplasm malignant [Not Recovered/Not Resolved]
  - Product use in unapproved indication [Unknown]
  - Adenocarcinoma [Not Recovered/Not Resolved]
  - Metastatic neoplasm [Not Recovered/Not Resolved]
  - Metastases to liver [Unknown]
  - Infection [Recovered/Resolved]
  - Back disorder [Not Recovered/Not Resolved]

NARRATIVE: CASE EVENT DATE: 2018
